FAERS Safety Report 11025434 (Version 1)
Quarter: 2015Q2

REPORT INFORMATION
  Report Type: Spontaneous
  Country: FR (occurrence: None)
  Receive Date: 20150410
  Receipt Date: 20150410
  Transmission Date: 20150821
  Serious: Yes (Hospitalization)
  Sender: FDA-Public Use
  Company Number: 2811746

PATIENT
  Age: 58 Year
  Sex: Male
  Weight: 72 kg

DRUGS (7)
  1. VINBLASTINE [Suspect]
     Active Substance: VINBLASTINE
     Indication: PRODUCT USED FOR UNKNOWN INDICATION
     Route: 042
     Dates: start: 20150221, end: 20150306
  2. EMEND [Suspect]
     Active Substance: APREPITANT
     Indication: PRODUCT USED FOR UNKNOWN INDICATION
     Route: 048
     Dates: start: 20150221, end: 20150221
  3. CARBOPLATIN. [Suspect]
     Active Substance: CARBOPLATIN
     Indication: PRODUCT USED FOR UNKNOWN INDICATION
     Route: 042
     Dates: start: 20150221, end: 20150221
  4. SOLUPRED [Suspect]
     Active Substance: PREDNISOLONE
     Indication: PRODUCT USED FOR UNKNOWN INDICATION
     Route: 048
     Dates: start: 20150222, end: 20150224
  5. METHYPREDNISOLONE [Suspect]
     Active Substance: METHYLPREDNISOLONE
     Indication: PRODUCT USED FOR UNKNOWN INDICATION
     Route: 042
     Dates: start: 20150220, end: 20150306
  6. ONDANSETRONE [Suspect]
     Active Substance: ONDANSETRON
     Indication: PRODUCT USED FOR UNKNOWN INDICATION
     Route: 042
     Dates: start: 20150221, end: 20150306
  7. METHOTREXATE [Suspect]
     Active Substance: METHOTREXATE
     Indication: PRODUCT USED FOR UNKNOWN INDICATION
     Dosage: 30 MG/M 2 MILLIGRAM(S)/SQ. METER, 1 DAY
     Route: 042
     Dates: start: 20150220, end: 20150306

REACTIONS (18)
  - Febrile neutropenia [None]
  - Renal impairment [None]
  - Hiccups [None]
  - Condition aggravated [None]
  - Generalised erythema [None]
  - Rash papular [None]
  - Stomatitis [None]
  - Haemoptysis [None]
  - Hydronephrosis [None]
  - Skin lesion [None]
  - Oedema peripheral [None]
  - Dyspnoea [None]
  - Thrombocytopenia [None]
  - Mouth ulceration [None]
  - Anaemia [None]
  - Cough [None]
  - Blister [None]
  - Pneumocystis jirovecii pneumonia [None]

NARRATIVE: CASE EVENT DATE: 20150227
